FAERS Safety Report 8314889-7 (Version None)
Quarter: 2012Q1

REPORT INFORMATION
  Report Type: 
  Country: None (occurrence: None)
  Receive Date: 20120315
  Receipt Date: 20110504
  Transmission Date: 20120608
  Serious: Yes (Hospitalization)
  Sender: FDA-Public Use
  Company Number: PHHY2011US37863

PATIENT
  Age: 44 Year
  Sex: Female

DRUGS (8)
  1. VALIUM [Concomitant]
  2. WELLBUTRIN [Concomitant]
  3. GILENYA [Suspect]
     Indication: MULTIPLE SCLEROSIS
     Dosage: 0.5 MG, QD, ORAL
     Route: 048
     Dates: start: 20110413, end: 20110413
  4. TOPROL-XL [Concomitant]
  5. LYRICA [Concomitant]
  6. LISINOPRIL [Concomitant]
  7. SIMVASTATIN [Concomitant]
  8. METFORMIN HCL [Concomitant]

REACTIONS (1)
  - HEART RATE DECREASED [None]
